FAERS Safety Report 12555435 (Version 3)
Quarter: 2016Q3

REPORT INFORMATION
  Report Type: Spontaneous
  Country: AT (occurrence: AT)
  Receive Date: 20160714
  Receipt Date: 20160722
  Transmission Date: 20161109
  Serious: Yes (Death, Hospitalization)
  Sender: FDA-Public Use
  Company Number: AT-ABBVIE-16K-009-1674776-00

PATIENT
  Age: 62 Year
  Sex: Male

DRUGS (1)
  1. DUODOPA [Suspect]
     Active Substance: CARBIDOPA\LEVODOPA
     Indication: PARKINSON^S DISEASE
     Dosage: MD: 9.5 ML; ED: 2.0 ML; CR: 6.0 ML/H
     Route: 050
     Dates: start: 20130516

REACTIONS (3)
  - Parkinson^s disease [Fatal]
  - Dementia [Fatal]
  - Cardiac arrest [Fatal]

NARRATIVE: CASE EVENT DATE: 20160711
